FAERS Safety Report 7131686-9 (Version None)
Quarter: 2010Q4

REPORT INFORMATION
  Report Type: 
  Country: None (occurrence: None)
  Receive Date: 20101201
  Receipt Date: 20101129
  Transmission Date: 20110411
  Serious: Yes (Other)
  Sender: FDA-Public Use
  Company Number: US-ABBOTT-10P-163-0630573-00

PATIENT
  Sex: Female

DRUGS (3)
  1. HUMIRA [Suspect]
     Indication: PSORIASIS
     Route: 058
     Dates: start: 20090901
  2. PRENATAL VITAMINS [Concomitant]
     Indication: PREGNANCY
     Route: 048
  3. PRENATAL VITAMINS [Concomitant]
     Indication: SUPPLEMENTATION THERAPY

REACTIONS (7)
  - ABORTION SPONTANEOUS [None]
  - DISABILITY [None]
  - HAEMORRHAGE [None]
  - RESPIRATORY TRACT CONGESTION [None]
  - ROAD TRAFFIC ACCIDENT [None]
  - SINUS CONGESTION [None]
  - SOFT TISSUE INJURY [None]
